FAERS Safety Report 4359712-0 (Version None)
Quarter: 2004Q2

REPORT INFORMATION
  Report Type: 
  Country: None (occurrence: None)
  Receive Date: 20040518
  Receipt Date: 20040216
  Transmission Date: 20050107
  Serious: Yes (Hospitalization, Other)
  Sender: FDA-Public Use
  Company Number: PHEH2004US02011

PATIENT
  Age: 78 Year
  Sex: Male
  Weight: 70 kg

DRUGS (6)
  1. DIOVAN HCT [Suspect]
     Indication: HYPERTENSION
     Dosage: ONE TABLET DAILY
     Route: 048
     Dates: start: 20031201, end: 20040216
  2. DARVOCET-N 100 [Concomitant]
     Dosage: AS NEEDED
  3. ASPIRIN [Concomitant]
  4. MOTRIN [Concomitant]
  5. DIOVAN [Suspect]
     Indication: HYPERTENSION
     Dosage: 160 MG, QD
     Route: 048
  6. MULTI-VITAMINS [Concomitant]

REACTIONS (23)
  - ANGINA UNSTABLE [None]
  - BLOOD CHLORIDE DECREASED [None]
  - BLOOD CREATININE INCREASED [None]
  - BLOOD PRESSURE ABNORMAL [None]
  - BLOOD PRESSURE SYSTOLIC INCREASED [None]
  - BLOOD SODIUM DECREASED [None]
  - BLOOD UREA INCREASED [None]
  - CHEST PAIN [None]
  - COUGH [None]
  - DIZZINESS [None]
  - ELECTROCARDIOGRAM Q WAVES [None]
  - FATIGUE [None]
  - HAEMATOCRIT DECREASED [None]
  - HAEMOGLOBIN DECREASED [None]
  - HEADACHE [None]
  - LYMPHOCYTE COUNT DECREASED [None]
  - LYMPHOCYTE PERCENTAGE DECREASED [None]
  - NEUTROPHIL COUNT INCREASED [None]
  - NEUTROPHIL PERCENTAGE INCREASED [None]
  - PCO2 DECREASED [None]
  - PCO2 INCREASED [None]
  - PLEURAL EFFUSION [None]
  - RED BLOOD CELL COUNT DECREASED [None]
